FAERS Safety Report 4375974-8 (Version None)
Quarter: 2004Q2

REPORT INFORMATION
  Report Type: 
  Country: None (occurrence: None)
  Receive Date: 20040607
  Receipt Date: 20040521
  Transmission Date: 20050107
  Serious: Yes (Other)
  Sender: FDA-Public Use
  Company Number: 2003-UK-00229UK

PATIENT
  Age: 40 Year
  Sex: Female

DRUGS (6)
  1. NEVIRAPINE (00015/ 0215 (A) (NEVIRAPINE) (NR) (NEVIRAPINE) [Suspect]
     Indication: HUMAN IMMUNODEFICIENCY VIRUS TRANSMISSION
     Dosage: 200 MG TWICE DAILY
     Dates: start: 20030301, end: 20030314
  2. NEVIRAPINE (00015/ 0215 (A) (NEVIRAPINE) (NR) (NEVIRAPINE) [Suspect]
     Indication: PROPHYLAXIS
     Dosage: 200 MG TWICE DAILY
     Dates: start: 20030301, end: 20030314
  3. NEVIRAPINE (00015/ 0215 (A) (NEVIRAPINE) (NR) (NEVIRAPINE) [Suspect]
     Indication: HUMAN IMMUNODEFICIENCY VIRUS TRANSMISSION
     Dosage: 200 MG TWICE DAILY
     Dates: start: 20030314, end: 20030412
  4. NEVIRAPINE (00015/ 0215 (A) (NEVIRAPINE) (NR) (NEVIRAPINE) [Suspect]
     Indication: PROPHYLAXIS
     Dosage: 200 MG TWICE DAILY
     Dates: start: 20030314, end: 20030412
  5. COMBIVIR [Concomitant]
  6. ZIDOVUDINE [Concomitant]

REACTIONS (9)
  - ALANINE AMINOTRANSFERASE INCREASED [None]
  - ASPARTATE AMINOTRANSFERASE INCREASED [None]
  - BLOOD BILIRUBIN INCREASED [None]
  - CAESAREAN SECTION [None]
  - DRUG EXPOSURE DURING PREGNANCY [None]
  - FATIGUE [None]
  - JAUNDICE [None]
  - PSORIASIS [None]
  - RASH [None]
